FAERS Safety Report 8277312-7 (Version None)
Quarter: 2012Q2

REPORT INFORMATION
  Report Type: 
  Country: None (occurrence: None)
  Receive Date: 20120412
  Receipt Date: 20120402
  Transmission Date: 20120825
  Serious: Yes (Hospitalization)
  Sender: FDA-Public Use
  Company Number: FR-GLAXOSMITHKLINE-B0788002A

PATIENT
  Age: 75 Year
  Sex: Female
  Weight: 55 kg

DRUGS (3)
  1. LERCANIDIPINE [Concomitant]
     Dosage: 10MG PER DAY
  2. ATENOLOL [Concomitant]
     Dosage: 100MG PER DAY
  3. ARIXTRA [Suspect]
     Indication: PAIN IN EXTREMITY
     Dosage: 2.5MG PER DAY
     Route: 042
     Dates: end: 20120220

REACTIONS (2)
  - OFF LABEL USE [None]
  - HAEMATOMA [None]
